FAERS Safety Report 8807539 (Version 2)
Quarter: 2012Q4

REPORT INFORMATION
  Report Type: 
  Country: US (occurrence: US)
  Receive Date: 20120925
  Receipt Date: 20121003
  Transmission Date: 20130627
  Serious: No
  Sender: FDA-Public Use
  Company Number: US-PFIZER INC-2012236854

PATIENT
  Sex: Male

DRUGS (2)
  1. LYRICA [Suspect]
     Indication: DIABETIC NEUROPATHY
     Dosage: UNK
     Dates: start: 20120922
  2. LYRICA [Suspect]
     Dosage: 100 mg, UNK

REACTIONS (5)
  - Restlessness [Unknown]
  - Insomnia [Unknown]
  - Abnormal behaviour [Unknown]
  - Palpitations [Unknown]
  - Dyskinesia [Unknown]
